FAERS Safety Report 8136269 (Version 5)
Quarter: 2012Q4

REPORT INFORMATION
  Report Type: 
  Country: US (occurrence: US)
  Receive Date: 20110914
  Receipt Date: 20121009
  Transmission Date: 20130627
  Serious: Yes (Hospitalization, Other)
  Sender: FDA-Public Use
  Company Number: US-ASTRAZENECA-2010SE23152

PATIENT
  Age: 50 Year
  Sex: Male

DRUGS (7)
  1. NEXIUM [Suspect]
     Indication: HYPERCHLORHYDRIA
     Route: 048
     Dates: start: 2001
  2. NEXIUM [Suspect]
     Indication: GASTROOESOPHAGEAL REFLUX DISEASE
     Route: 048
     Dates: start: 2001
  3. PREVACID [Concomitant]
  4. ACIPHEX [Concomitant]
  5. LIPITOR [Concomitant]
  6. PEPCID AC [Concomitant]
  7. ROLAIDS [Concomitant]

REACTIONS (16)
  - Accident at work [Unknown]
  - Neoplasm malignant [Unknown]
  - Bladder cancer [Unknown]
  - Prostate cancer [Unknown]
  - Neoplasm [Unknown]
  - Gastrooesophageal reflux disease [Unknown]
  - Gastrooesophageal reflux disease [Unknown]
  - Back injury [Unknown]
  - Limb injury [Unknown]
  - Blood cholesterol increased [Unknown]
  - Intervertebral disc protrusion [Unknown]
  - Nerve compression [Unknown]
  - Kidney infection [Unknown]
  - Hyperchlorhydria [Unknown]
  - Dyspepsia [Unknown]
  - Drug dose omission [Unknown]
